FAERS Safety Report 10079772 (Version 2)
Quarter: 2014Q2

REPORT INFORMATION
  Report Type: Spontaneous
  Country: US (occurrence: US)
  Receive Date: 20140415
  Receipt Date: 20140508
  Transmission Date: 20141212
  Serious: Yes (Life-Threatening, Hospitalization, Other)
  Sender: FDA-Public Use
  Company Number: US-GLAXOSMITHKLINE-A1069512A

PATIENT
  Age: 53 Year
  Sex: Male
  Weight: 89.5 kg

DRUGS (12)
  1. ARIXTRA [Suspect]
     Indication: PULMONARY EMBOLISM
     Dosage: 7.5MG PER DAY
     Route: 058
     Dates: start: 20140130, end: 20140131
  2. SUTENT [Suspect]
     Indication: PRODUCT USED FOR UNKNOWN INDICATION
     Dosage: 50MG PER DAY
     Route: 048
     Dates: end: 20140130
  3. COUMADIN [Suspect]
     Indication: PRODUCT USED FOR UNKNOWN INDICATION
     Route: 048
     Dates: end: 20140130
  4. PAXIL [Suspect]
     Indication: DEPRESSION
     Route: 065
  5. ACIPHEX [Suspect]
     Indication: PRODUCT USED FOR UNKNOWN INDICATION
     Route: 065
  6. COLACE [Concomitant]
  7. LISINOPRIL [Concomitant]
  8. PROBIOTIC [Concomitant]
  9. MS CONTIN [Concomitant]
  10. MULTIVITAMINS [Concomitant]
  11. NICODERM [Concomitant]
  12. NORCO [Concomitant]

REACTIONS (30)
  - Gastrointestinal tube insertion [Recovered/Resolved]
  - Haemoptysis [Recovered/Resolved]
  - Oesophagogastroduodenoscopy [Recovered/Resolved]
  - Haematemesis [Recovering/Resolving]
  - Upper gastrointestinal haemorrhage [Recovering/Resolving]
  - Abdominal pain [Recovering/Resolving]
  - Dizziness [Recovering/Resolving]
  - Fatigue [Recovering/Resolving]
  - Asthenia [Recovering/Resolving]
  - Anxiety [Recovering/Resolving]
  - Tachycardia [Recovering/Resolving]
  - Wheezing [Recovering/Resolving]
  - Gastrointestinal sounds abnormal [Recovering/Resolving]
  - Abdominal mass [Unknown]
  - Lymphadenopathy [Recovering/Resolving]
  - Abdominal tenderness [Recovering/Resolving]
  - Packed red blood cell transfusion [Unknown]
  - Blood product transfusion [Unknown]
  - Hospice care [Unknown]
  - Anaemia [Recovering/Resolving]
  - Drug ineffective [Unknown]
  - Depression [Recovering/Resolving]
  - Renal mass [Unknown]
  - Vomiting [Recovering/Resolving]
  - Coagulopathy [Recovering/Resolving]
  - Lung hyperinflation [Unknown]
  - Lung infiltration [Unknown]
  - Calculus ureteric [Unknown]
  - Haemoglobin decreased [Recovering/Resolving]
  - International normalised ratio increased [Recovering/Resolving]
